FAERS Safety Report 8419333 (Version 5)
Quarter: 2013Q4

REPORT INFORMATION
  Report Type: Spontaneous
  Country: JP (occurrence: JP)
  Receive Date: 20120221
  Receipt Date: 20131231
  Transmission Date: 20140711
  Serious: Yes (Other)
  Sender: FDA-Public Use
  Company Number: PHHY2012JP011463

PATIENT
  Age: 18 Year
  Sex: Female
  Weight: 56 kg

DRUGS (32)
  1. AKINETON [Suspect]
     Indication: SCHIZOPHRENIA, PARANOID TYPE
     Dosage: 6 MG, UNK
     Route: 048
     Dates: start: 20110614, end: 20110622
  2. AKINETON [Suspect]
     Dosage: 2 MG, UNK
     Route: 048
     Dates: start: 20110623, end: 20110627
  3. AKINETON [Suspect]
     Dosage: 1 MG, UNK
     Route: 048
     Dates: start: 20110628, end: 20110716
  4. LACTOMIN [Concomitant]
     Dosage: 3000 MG, UNK
     Route: 048
     Dates: start: 20110710, end: 20110710
  5. CLOZARIL [Suspect]
     Indication: SCHIZOPHRENIA, PARANOID TYPE
     Dosage: 12.5 MG
     Route: 048
     Dates: start: 20110614, end: 20110614
  6. CLOZARIL [Suspect]
     Dosage: 25 MG
     Route: 048
     Dates: start: 20110615, end: 20110620
  7. CLOZARIL [Suspect]
     Dosage: 50 MG
     Route: 048
     Dates: start: 20110621, end: 20110623
  8. CLOZARIL [Suspect]
     Dosage: 75 MG
     Route: 048
     Dates: start: 20110624, end: 20110626
  9. CLOZARIL [Suspect]
     Dosage: 100 MG
     Route: 048
     Dates: start: 20110627, end: 20110630
  10. CLOZARIL [Suspect]
     Dosage: 125 MG
     Route: 048
     Dates: start: 20110701, end: 20110703
  11. CLOZARIL [Suspect]
     Dosage: 150 MG
     Route: 048
     Dates: start: 20110704, end: 20110706
  12. CLOZARIL [Suspect]
     Dosage: 175 MG
     Route: 048
     Dates: start: 20110707, end: 20110711
  13. CLOZARIL [Suspect]
     Dosage: 200 MG
     Route: 048
     Dates: start: 20110712, end: 20110716
  14. CLOZARIL [Suspect]
     Dosage: 300 MG
     Route: 048
     Dates: start: 20110717, end: 20110721
  15. CLOZARIL [Suspect]
     Dosage: 400 MG
     Route: 048
     Dates: start: 20110722, end: 20110726
  16. CLOZARIL [Suspect]
     Dosage: 500 MG
     Route: 048
     Dates: start: 20110727, end: 20110731
  17. CLOZARIL [Suspect]
     Dosage: 600 MG
     Route: 048
     Dates: start: 20110801, end: 20110801
  18. CLOZARIL [Suspect]
     Dosage: 500 MG
     Route: 048
     Dates: start: 20110802, end: 20110907
  19. CLOZARIL [Suspect]
     Dosage: 400 MG
     Route: 048
     Dates: start: 20110908, end: 20110928
  20. CLOZARIL [Suspect]
     Dosage: 350 MG
     Route: 048
     Dates: start: 20110929, end: 20111019
  21. CLOZARIL [Suspect]
     Dosage: 300 MG
     Route: 048
     Dates: start: 20111020, end: 20111109
  22. CLOZARIL [Suspect]
     Dosage: 250 MG
     Route: 048
     Dates: start: 20111110, end: 20111116
  23. CLOZARIL [Suspect]
     Dosage: 200 MG
     Route: 048
     Dates: start: 20111117, end: 20111123
  24. CLOZARIL [Suspect]
     Dosage: 250 MG
     Route: 048
     Dates: start: 20111124, end: 20111214
  25. CLOZARIL [Suspect]
     Dosage: 300 MG
     Route: 048
     Dates: start: 20111215, end: 20130403
  26. CLOZARIL [Suspect]
     Dosage: 325 MG
     Route: 048
     Dates: start: 20130404, end: 20130417
  27. CLOZARIL [Suspect]
     Dosage: 375 MG
     Route: 048
     Dates: start: 20130418, end: 20130501
  28. CLOZARIL [Suspect]
     Dosage: 425 MG
     Route: 048
     Dates: start: 20130502
  29. RISPERIDONE [Suspect]
     Indication: SCHIZOPHRENIA, PARANOID TYPE
     Dosage: 12 MG
     Route: 048
     Dates: start: 20110614, end: 20110615
  30. RISPERIDONE [Suspect]
     Dosage: 9 MG, UNK
     Route: 048
     Dates: start: 20110616, end: 20110621
  31. RISPERIDONE [Suspect]
     Dosage: 6 MG, UNK
     Route: 048
     Dates: start: 20110622, end: 20110623
  32. RISPERIDONE [Suspect]
     Dosage: 3 MG, UNK
     Route: 048
     Dates: start: 20110624, end: 20110706

REACTIONS (9)
  - Orthostatic hypotension [Recovered/Resolved]
  - Presyncope [Unknown]
  - Tachycardia [Recovering/Resolving]
  - Heart rate increased [Not Recovered/Not Resolved]
  - Eosinophil count increased [Recovered/Resolved]
  - Red blood cell count decreased [Unknown]
  - Lymphocyte count decreased [Unknown]
  - Platelet count increased [Unknown]
  - Hypotension [Recovered/Resolved]
